FAERS Safety Report 9190676 (Version 1)
Quarter: 2013Q1

REPORT INFORMATION
  Report Type: Spontaneous
  Country: IE (occurrence: IE)
  Receive Date: 20130326
  Receipt Date: 20130327
  Transmission Date: 20140127
  Serious: Yes (Other)
  Sender: FDA-Public Use
  Company Number: IE-BAXTER-2013BAX009682

PATIENT
  Age: 48 Year
  Sex: Male

DRUGS (7)
  1. KIOVIG [Suspect]
     Indication: CHRONIC INFLAMMATORY DEMYELINATING POLYRADICULONEUROPATHY
     Route: 042
     Dates: start: 20130213, end: 20130214
  2. KIOVIG [Suspect]
     Indication: OFF LABEL USE
  3. FLUCLOXACILLIN [Concomitant]
     Indication: CELLULITIS
     Route: 042
     Dates: start: 20130214, end: 20130215
  4. BENZYLPENICILLIN [Concomitant]
     Indication: CELLULITIS
     Route: 042
     Dates: start: 20130214, end: 20130215
  5. ENOXAPARIN [Concomitant]
     Indication: THROMBOSIS PROPHYLAXIS
     Route: 058
     Dates: start: 20130211, end: 20130221
  6. OMEPRAZOLE [Concomitant]
     Indication: PRODUCT USED FOR UNKNOWN INDICATION
     Route: 048
     Dates: start: 20130214, end: 20130221
  7. PARACETAMOL [Concomitant]
     Indication: ANALGESIC THERAPY
     Route: 048
     Dates: start: 20130211, end: 20130218

REACTIONS (2)
  - Meningitis aseptic [Recovered/Resolved]
  - CSF white blood cell count increased [Recovered/Resolved]
